FAERS Safety Report 7813159-0 (Version None)
Quarter: 2011Q4

REPORT INFORMATION
  Report Type: 
  Country: None (occurrence: None)
  Receive Date: 20111013
  Receipt Date: 20111006
  Transmission Date: 20120403
  Serious: Yes (Other)
  Sender: FDA-Public Use
  Company Number: US-GILEAD-2011-0043565

PATIENT

DRUGS (2)
  1. LETAIRIS [Suspect]
     Indication: CARDIAC DISORDER
  2. LETAIRIS [Suspect]
     Indication: PULMONARY HYPERTENSION
     Route: 048
     Dates: start: 20110505

REACTIONS (1)
  - RENAL FAILURE ACUTE [None]
